FAERS Safety Report 9818579 (Version 5)
Quarter: 2014Q3

REPORT INFORMATION
  Report Type: Report from Study
  Country: BR (occurrence: BR)
  Receive Date: 20140115
  Receipt Date: 20140711
  Transmission Date: 20150326
  Serious: Yes (Other)
  Sender: FDA-Public Use
  Company Number: BR-ELI_LILLY_AND_COMPANY-BR201401000929

PATIENT
  Sex: Female
  Weight: 68 kg

DRUGS (19)
  1. NOVOLIN [Concomitant]
     Active Substance: INSULIN HUMAN
     Indication: TYPE 1 DIABETES MELLITUS
     Dosage: UNK, UNKNOWN
     Route: 065
  2. ATENOLOL. [Concomitant]
     Active Substance: ATENOLOL
     Indication: BLOOD PRESSURE
     Dosage: 4 DF, UNKNOWN
     Route: 065
  3. OMEPRAZOL [Concomitant]
     Active Substance: OMEPRAZOLE
     Indication: PROPHYLAXIS
  4. HUMAN INSULIN [Suspect]
     Active Substance: INSULIN HUMAN
     Indication: TYPE 1 DIABETES MELLITUS
     Dosage: 10 IU, TID
     Route: 058
  5. HUMAN INSULIN [Suspect]
     Active Substance: INSULIN HUMAN
     Dosage: 16 IU, TID
     Route: 058
  6. HUMAN INSULIN [Suspect]
     Active Substance: INSULIN HUMAN
     Dosage: 14 IU, QD
     Route: 058
  7. INDAPEN [Concomitant]
     Active Substance: INDAPAMIDE
     Indication: BLOOD PRESSURE
     Dosage: 1.5 MG, QD
     Route: 065
  8. LACRIMA PLUS [Concomitant]
     Indication: PRODUCT USED FOR UNKNOWN INDICATION
  9. HUMAN INSULIN [Suspect]
     Active Substance: INSULIN HUMAN
     Indication: TYPE 1 DIABETES MELLITUS
     Dosage: 10 IU, TID
     Route: 058
  10. HUMAN INSULIN [Suspect]
     Active Substance: INSULIN HUMAN
     Dosage: 12 IU, EACH MORNING
     Route: 058
  11. HUMAN INSULIN [Suspect]
     Active Substance: INSULIN HUMAN
     Dosage: UNK, OTHER
     Route: 058
  12. ATENSINA [Concomitant]
     Active Substance: CLONIDINE
     Indication: HYPERTENSION
     Dosage: 0.100 MG, QD
     Route: 065
  13. HUMAN INSULIN [Suspect]
     Active Substance: INSULIN HUMAN
     Dosage: 14 IU, UNKNOWN
     Route: 058
  14. HUMAN INSULIN (RDNA) NPH UNK MANU [Suspect]
     Active Substance: INSULIN HUMAN
     Indication: TYPE 1 DIABETES MELLITUS
     Dosage: UNK, UNKNOWN
     Route: 058
  15. HUMAN INSULIN [Suspect]
     Active Substance: INSULIN HUMAN
     Dosage: 16 IU, TID
     Route: 058
  16. HUMAN INSULIN [Suspect]
     Active Substance: INSULIN HUMAN
     Dosage: 20 IU, UNKNOWN
     Route: 058
  17. ARTRODAR [Concomitant]
     Active Substance: DIACEREIN
     Indication: OSTEOARTHRITIS
     Dosage: UNK, QD
     Route: 065
  18. LOSARTAN POTASSICO [Concomitant]
     Indication: BLOOD PRESSURE
     Dosage: 50 MG, BID
     Route: 065
  19. CALCIUM CITRATE W/COLECALCIFEROL [Concomitant]
     Indication: BONE DISORDER
     Dosage: 250 MG, QD
     Route: 065

REACTIONS (11)
  - Retinal detachment [Not Recovered/Not Resolved]
  - Hyperglycaemia [Recovered/Resolved]
  - Blood glucose abnormal [Unknown]
  - Ovarian cyst [Unknown]
  - Blood calcium decreased [Unknown]
  - Blindness [Not Recovered/Not Resolved]
  - Blood glucose decreased [Recovered/Resolved]
  - Cataract [Not Recovered/Not Resolved]
  - Injection site bruising [Recovered/Resolved]
  - Blindness [Unknown]
  - Eye haemorrhage [Not Recovered/Not Resolved]

NARRATIVE: CASE EVENT DATE: 2013
